FAERS Safety Report 6992635-7 (Version None)
Quarter: 2010Q3

REPORT INFORMATION
  Report Type: 
  Country: None (occurrence: None)
  Receive Date: 20100917
  Receipt Date: 20100903
  Transmission Date: 20110219
  Serious: Yes (Other)
  Sender: FDA-Public Use
  Company Number: CA-GENENTECH-306403

PATIENT
  Sex: Female

DRUGS (1)
  1. LUCENTIS [Suspect]
     Indication: PRODUCT USED FOR UNKNOWN INDICATION
     Dosage: UNK
     Route: 031
     Dates: start: 20090401

REACTIONS (5)
  - CONTUSION [None]
  - FALL [None]
  - PERIORBITAL HAEMATOMA [None]
  - RIB FRACTURE [None]
  - UPPER LIMB FRACTURE [None]
